FAERS Safety Report 4774654-4 (Version None)
Quarter: 2005Q3

REPORT INFORMATION
  Report Type: 
  Country: None (occurrence: None)
  Receive Date: 20050921
  Receipt Date: 20050711
  Transmission Date: 20060218
  Serious: Yes (Other)
  Sender: FDA-Public Use
  Company Number: PHFR2005GB02403

PATIENT
  Age: 38 Year
  Weight: 60 kg

DRUGS (2)
  1. CYCLOSPORINE [Suspect]
     Indication: PSORIASIS
     Dosage: 150-250MG QD
     Route: 048
     Dates: start: 20041125, end: 20050422
  2. LEVONORGESTREL AND ETHINYL ESTRADIOL [Concomitant]
     Indication: ORAL CONTRACEPTION
     Dosage: UNK, QD
     Route: 048
     Dates: start: 20041218

REACTIONS (1)
  - ALOPECIA EFFLUVIUM [None]
